FAERS Safety Report 9085825 (Version 1)
Quarter: 2013Q1

REPORT INFORMATION
  Report Type: Report from Study
  Country: US (occurrence: US)
  Receive Date: 20130131
  Receipt Date: 20130131
  Transmission Date: 20140127
  Serious: Yes (Other)
  Sender: FDA-Public Use
  Company Number: US-ABBOTT-12P-163-0993068-00

PATIENT
  Age: 35 Year
  Sex: Female

DRUGS (3)
  1. HUMIRA [Suspect]
     Dosage: 160 MG DAY 1, 80 MG DAY 15
     Route: 058
     Dates: start: 201209, end: 201210
  2. HUMIRA [Suspect]
     Dosage: 4 LOADING DOSES
     Dates: start: 2009, end: 2009
  3. ENDOCORT [Concomitant]
     Indication: PRODUCT USED FOR UNKNOWN INDICATION

REACTIONS (10)
  - Dyspnoea [Recovered/Resolved]
  - Pruritus [Unknown]
  - Injection site rash [Recovered/Resolved]
  - Injection site pruritus [Unknown]
  - Injection site pruritus [Recovered/Resolved]
  - Injection site vesicles [Recovered/Resolved]
  - Pruritus generalised [Unknown]
  - Feeling hot [Recovered/Resolved]
  - Injection site reaction [Recovered/Resolved]
  - Injection site pain [Recovered/Resolved]
